FAERS Safety Report 16333184 (Version 1)
Quarter: 2019Q2

REPORT INFORMATION
  Report Type: Spontaneous
  Country: US (occurrence: US)
  Receive Date: 20190413
  Receipt Date: 20190413
  Transmission Date: 20190711
  Serious: Yes (Hospitalization)
  Sender: FDA-Public Use
  Company Number: None

PATIENT
  Age: 62 Year
  Sex: Male
  Weight: 65.8 kg

DRUGS (3)
  1. LEUCOVORIN CALCIUM. [Suspect]
     Active Substance: LEUCOVORIN CALCIUM
     Dates: end: 20190320
  2. ELOXATIN [Suspect]
     Active Substance: OXALIPLATIN
     Dates: end: 20190320
  3. 5-FLUOROURACIL (5-FU) [Suspect]
     Active Substance: FLUOROURACIL
     Dates: end: 20190322

REACTIONS (10)
  - Hyponatraemia [None]
  - Haemoglobin decreased [None]
  - Metabolic encephalopathy [None]
  - Hypokalaemia [None]
  - Acute kidney injury [None]
  - Thrombocytopenia [None]
  - Enteritis [None]
  - Colitis [None]
  - Fall [None]
  - Sepsis [None]

NARRATIVE: CASE EVENT DATE: 20190402
